FAERS Safety Report 11253306 (Version 1)
Quarter: 2015Q3

REPORT INFORMATION
  Report Type: Spontaneous
  Country: US (occurrence: US)
  Receive Date: 20150709
  Receipt Date: 20150709
  Transmission Date: 20151125
  Serious: No
  Sender: FDA-Public Use
  Company Number: US-TEVA-562171USA

PATIENT
  Sex: Male

DRUGS (1)
  1. VENLAFAXINE [Suspect]
     Active Substance: VENLAFAXINE HYDROCHLORIDE
     Indication: PRODUCT USED FOR UNKNOWN INDICATION
     Dosage: FREQUENCY NOT PROVIDED
     Route: 065

REACTIONS (5)
  - Dysphagia [Unknown]
  - Foreign body [Unknown]
  - Product packaging quantity issue [Unknown]
  - Oesophageal pain [Unknown]
  - Pain [Unknown]
